FAERS Safety Report 24903926 (Version 2)
Quarter: 2025Q2

REPORT INFORMATION
  Report Type: Spontaneous
  Country: CN (occurrence: CN)
  Receive Date: 20250130
  Receipt Date: 20250608
  Transmission Date: 20250716
  Serious: Yes (Other)
  Sender: COHERUS
  Company Number: CN-SHANGHAI JUNSHI BIOSCIENCES CO., LTD.-CN2025012878

PATIENT

DRUGS (3)
  1. TORIPALIMAB [Suspect]
     Active Substance: TORIPALIMAB
     Indication: Renal cancer
     Dosage: 240 MG, EVERY 21 DAYS
     Route: 041
     Dates: start: 202111, end: 202112
  2. TORIPALIMAB [Suspect]
     Active Substance: TORIPALIMAB
     Dosage: 240 MG, EVERY 21 DAYS
     Route: 041
     Dates: start: 20250121
  3. CATEQUENTINIB [Concomitant]
     Active Substance: CATEQUENTINIB
     Indication: Renal cancer

REACTIONS (9)
  - Pharyngeal haemorrhage [Unknown]
  - Epistaxis [Unknown]
  - Oral mucosa erosion [Unknown]
  - Oral mucosal blistering [Unknown]
  - Mouth ulceration [Unknown]
  - Pharyngitis [Unknown]
  - Pharyngeal erosion [Unknown]
  - Nasopharyngitis [Unknown]
  - Cough [Unknown]

NARRATIVE: CASE EVENT DATE: 20230101
